FAERS Safety Report 4870657-X (Version None)
Quarter: 2005Q4

REPORT INFORMATION
  Report Type: 
  Country: None (occurrence: None)
  Receive Date: 20051228
  Receipt Date: 20051220
  Transmission Date: 20060501
  Serious: Yes (Other)
  Sender: FDA-Public Use
  Company Number: 2005169955

PATIENT
  Age: 77 Year
  Sex: Male

DRUGS (7)
  1. DOXAZOSIN MESYLATE [Suspect]
     Indication: HYPERTENSION
     Dosage: ORAL
     Route: 048
  2. OLMETEC (OLMESARTAN) [Suspect]
     Indication: HYPERTENSION
     Dosage: ORAL
     Route: 048
     Dates: end: 20051212
  3. PIOGLITAZOLE (PIOGLITAZOLE) [Concomitant]
  4. GLIMEPIRIDE [Concomitant]
  5. ALLOPURINOL [Concomitant]
  6. BIOFERMIN (BACILLUS SUBTILIS, LACTOBACILLUS ACIDOPHILUS, STREPTOCOCCUS [Concomitant]
  7. MECOBALAMIN (MECOBALAMIN) [Concomitant]

REACTIONS (3)
  - AMNESIA [None]
  - DISORIENTATION [None]
  - LOSS OF CONSCIOUSNESS [None]
